FAERS Safety Report 5700814-1 (Version None)
Quarter: 2008Q2

REPORT INFORMATION
  Report Type: 
  Country: None (occurrence: None)
  Receive Date: 20080407
  Receipt Date: 20080324
  Transmission Date: 20081010
  Serious: Yes (Hospitalization)
  Sender: FDA-Public Use
  Company Number: 2008AL001807

PATIENT
  Age: 57 Year
  Sex: Female

DRUGS (1)
  1. NAPROXEN [Suspect]
     Indication: ABDOMINAL PAIN
     Dosage: X1; PO
     Route: 048

REACTIONS (4)
  - CHOLESTASIS [None]
  - HEPATIC NECROSIS [None]
  - HEPATIC STEATOSIS [None]
  - HEPATITIS TOXIC [None]
